FAERS Safety Report 11968346 (Version 6)
Quarter: 2017Q2

REPORT INFORMATION
  Report Type: Report from Study
  Country: US (occurrence: US)
  Receive Date: 20160128
  Receipt Date: 20170410
  Transmission Date: 20170829
  Serious: Yes (Hospitalization)
  Sender: FDA-Public Use
  Company Number: US-BIOGEN-2016BI00180602

PATIENT
  Age: 61 Year
  Sex: Female

DRUGS (1)
  1. TYSABRI [Suspect]
     Active Substance: NATALIZUMAB
     Indication: MULTIPLE SCLEROSIS
     Route: 042
     Dates: start: 20081114, end: 20161005

REACTIONS (4)
  - Chronic obstructive pulmonary disease [Not Recovered/Not Resolved]
  - Infection [Recovered/Resolved]
  - Panic reaction [Unknown]
  - Influenza [Recovered/Resolved]

NARRATIVE: CASE EVENT DATE: 20160122
